FAERS Safety Report 12845727 (Version 1)
Quarter: 2016Q4

REPORT INFORMATION
  Report Type: Report from Study
  Country: CA (occurrence: CA)
  Receive Date: 20161013
  Receipt Date: 20161013
  Transmission Date: 20170207
  Serious: Yes (Other)
  Sender: FDA-Public Use
  Company Number: CA-JNJFOC-20161005603

PATIENT
  Age: 33 Year
  Sex: Female
  Weight: 66.9 kg

DRUGS (1)
  1. REMICADE [Suspect]
     Active Substance: INFLIXIMAB
     Indication: COLITIS ULCERATIVE
     Route: 042
     Dates: start: 2012

REACTIONS (5)
  - Vertigo [Unknown]
  - Off label use [Unknown]
  - Product use issue [Unknown]
  - Headache [Unknown]
  - Ear infection [Unknown]

NARRATIVE: CASE EVENT DATE: 2012
